FAERS Safety Report 25285581 (Version 1)
Quarter: 2025Q2

REPORT INFORMATION
  Report Type: Spontaneous
  Country: CN (occurrence: CN)
  Receive Date: 20250509
  Receipt Date: 20250509
  Transmission Date: 20250717
  Serious: Yes (Other)
  Sender: Unknown Manufacturer
  Company Number: CN-ASTRAZENECA-202504CHN021767CN

PATIENT

DRUGS (1)
  1. METOPROLOL SUCCINATE [Suspect]
     Active Substance: METOPROLOL SUCCINATE
     Indication: Cardiac failure
     Dosage: 23.75 MILLIGRAM, QD
     Route: 048
     Dates: start: 20250409, end: 20250415

REACTIONS (1)
  - Rhythm idioventricular [Recovering/Resolving]

NARRATIVE: CASE EVENT DATE: 20250409
